FAERS Safety Report 4341038-2 (Version None)
Quarter: 2004Q2

REPORT INFORMATION
  Report Type: 
  Country: None (occurrence: None)
  Receive Date: 20040419
  Receipt Date: 20040323
  Transmission Date: 20050107
  Serious: Yes (Life-Threatening)
  Sender: FDA-Public Use
  Company Number: JP-MERCK-0403USA02318

PATIENT
  Age: 62 Year
  Sex: Female

DRUGS (4)
  1. DECADRON [Concomitant]
     Route: 042
     Dates: start: 20040319, end: 20040319
  2. RESTAMIN [Concomitant]
     Route: 048
     Dates: start: 20040319, end: 20040319
  3. PEPCID [Suspect]
     Indication: PROPHYLAXIS
     Route: 042
     Dates: start: 20040319, end: 20040319
  4. SODIUM CHLORIDE [Concomitant]
     Route: 042
     Dates: start: 20040319, end: 20040319

REACTIONS (4)
  - BLOOD PRESSURE DECREASED [None]
  - CHEST PAIN [None]
  - DIARRHOEA [None]
  - DRUG HYPERSENSITIVITY [None]
